FAERS Safety Report 5209193-X (Version None)
Quarter: 2006Q4

REPORT INFORMATION
  Report Type: 
  Country: None (occurrence: None)
  Receive Date: 20061226
  Receipt Date: 20061221
  Transmission Date: 20070319
  Serious: No
  Sender: FDA-Public Use
  Company Number: 200610707

PATIENT
  Age: 5 Year
  Sex: Female
  Weight: 15.8759 kg

DRUGS (5)
  1. VIVAGLOBIN [Suspect]
     Indication: HYPOGAMMAGLOBULINAEMIA
     Dosage: SC
     Route: 058
     Dates: start: 20060503, end: 20060830
  2. VIVAGLOBIN [Suspect]
     Indication: HYPOGAMMAGLOBULINAEMIA
     Dosage: SC
     Route: 058
     Dates: start: 20060503, end: 20060830
  3. VIVAGLOBIN [Suspect]
  4. AMOXICILLIN [Concomitant]
  5. ZYRTEC [Concomitant]

REACTIONS (7)
  - ABDOMINAL PAIN UPPER [None]
  - CONSTIPATION [None]
  - DECREASED APPETITE [None]
  - GASTROOESOPHAGEAL REFLUX DISEASE [None]
  - STOMACH DISCOMFORT [None]
  - TOOTH EROSION [None]
  - WEIGHT DECREASED [None]
